FAERS Safety Report 18170716 (Version 1)
Quarter: 2020Q3

REPORT INFORMATION
  Report Type: Spontaneous
  Country: US (occurrence: US)
  Receive Date: 20200819
  Receipt Date: 20200819
  Transmission Date: 20201103
  Serious: No
  Sender: FDA-Public Use
  Company Number: US-BIOVITRUM-2020US4356

PATIENT
  Age: 2 Year
  Sex: Female

DRUGS (1)
  1. GAMIFANT [Suspect]
     Active Substance: EMAPALUMAB-LZSG
     Indication: HAEMOPHAGOCYTIC LYMPHOHISTIOCYTOSIS
     Dosage: 1.4 MG/KG
     Dates: start: 202007

REACTIONS (5)
  - Irritability [Unknown]
  - Crying [Unknown]
  - Teething [Unknown]
  - Hyperresponsive to stimuli [Unknown]
  - Constipation [Unknown]
